FAERS Safety Report 6637295-X (Version None)
Quarter: 2010Q1

REPORT INFORMATION
  Report Type: 
  Country: None (occurrence: None)
  Receive Date: 20100310
  Receipt Date: 20100225
  Transmission Date: 20100710
  Serious: Yes (Hospitalization)
  Sender: FDA-Public Use
  Company Number: 8048745

PATIENT
  Sex: Female
  Weight: 69.9 kg

DRUGS (7)
  1. CERTOLIZUMAB PEGOL (CERTOLIZUMAB PEGOL) [Suspect]
     Indication: RHEUMATOID ARTHRITIS
     Dosage: 400 MG 1X/2 WEEKS, SUBCUTANEOUS, 200 MG 1X/2 WEEKS SUBCUTANEOUS, 200 MG 1X/2 WEEKS SUBCUTANEOUS
     Route: 058
     Dates: start: 20051220, end: 20071204
  2. CERTOLIZUMAB PEGOL (CERTOLIZUMAB PEGOL) [Suspect]
     Indication: RHEUMATOID ARTHRITIS
     Dosage: 400 MG 1X/2 WEEKS, SUBCUTANEOUS, 200 MG 1X/2 WEEKS SUBCUTANEOUS, 200 MG 1X/2 WEEKS SUBCUTANEOUS
     Route: 058
     Dates: start: 20071218, end: 20090705
  3. CERTOLIZUMAB PEGOL (CERTOLIZUMAB PEGOL) [Suspect]
     Indication: RHEUMATOID ARTHRITIS
     Dosage: 400 MG 1X/2 WEEKS, SUBCUTANEOUS, 200 MG 1X/2 WEEKS SUBCUTANEOUS, 200 MG 1X/2 WEEKS SUBCUTANEOUS
     Route: 058
     Dates: start: 20090810
  4. METHOTREXATE [Concomitant]
  5. DICLOFENAC [Concomitant]
  6. FOLIC ACID [Concomitant]
  7. TRAVOPROST [Concomitant]

REACTIONS (9)
  - ABDOMINAL PAIN [None]
  - ASPARTATE AMINOTRANSFERASE INCREASED [None]
  - BLOOD UREA INCREASED [None]
  - CELLULITIS [None]
  - ERYSIPELAS [None]
  - HERPES ZOSTER [None]
  - LUNG INFILTRATION [None]
  - PNEUMONIA [None]
  - PULMONARY FIBROSIS [None]
